FAERS Safety Report 13212245 (Version 2)
Quarter: 2017Q2

REPORT INFORMATION
  Report Type: Spontaneous
  Country: US (occurrence: US)
  Receive Date: 20170210
  Receipt Date: 20170517
  Transmission Date: 20170830
  Serious: Yes (Other)
  Sender: FDA-Public Use
  Company Number: US-BAYER-2017-026128

PATIENT
  Sex: Female
  Weight: 94.79 kg

DRUGS (2)
  1. MIRENA [Suspect]
     Active Substance: LEVONORGESTREL
     Indication: CONTRACEPTION
     Dosage: 20 MCG/24HR, CONT
     Route: 015
     Dates: start: 20160928, end: 20170420
  2. MIRENA [Suspect]
     Active Substance: LEVONORGESTREL
     Indication: MENORRHAGIA

REACTIONS (5)
  - Abdominal pain [Recovering/Resolving]
  - Embedded device [Recovering/Resolving]
  - Device difficult to use [None]
  - Device breakage [None]
  - Genital haemorrhage [Recovering/Resolving]

NARRATIVE: CASE EVENT DATE: 2016
